FAERS Safety Report 17112942 (Version 2)
Quarter: 2019Q4

REPORT INFORMATION
  Report Type: Spontaneous
  Country: JP (occurrence: JP)
  Receive Date: 20191204
  Receipt Date: 20191212
  Transmission Date: 20200122
  Serious: No
  Sender: FDA-Public Use
  Company Number: JP-LUNDBECK-DKLU3008441

PATIENT
  Age: 85 Year
  Sex: Female

DRUGS (1)
  1. DOPS [Suspect]
     Active Substance: DROXIDOPA
     Indication: PRODUCT USED FOR UNKNOWN INDICATION
     Route: 048

REACTIONS (3)
  - Vomiting [Unknown]
  - Nausea [Unknown]
  - Decreased appetite [Unknown]
